FAERS Safety Report 14067490 (Version 1)
Quarter: 2017Q4

REPORT INFORMATION
  Report Type: Spontaneous
  Country: US (occurrence: None)
  Receive Date: 20171009
  Receipt Date: 20171009
  Transmission Date: 20180321
  Serious: Yes (Hospitalization)
  Sender: FDA-Public Use
  Company Number: None

PATIENT
  Age: 36 Year
  Sex: Female

DRUGS (1)
  1. COPAXONE [Suspect]
     Active Substance: GLATIRAMER ACETATE

REACTIONS (5)
  - Migraine [None]
  - Dyspnoea [None]
  - Drug hypersensitivity [None]
  - Pain in extremity [None]
  - Pyrexia [None]

NARRATIVE: CASE EVENT DATE: 20170703
